FAERS Safety Report 20767763 (Version 4)
Quarter: 2022Q2

REPORT INFORMATION
  Report Type: Spontaneous
  Country: US (occurrence: US)
  Receive Date: 20220429
  Receipt Date: 20220530
  Transmission Date: 20220720
  Serious: No
  Sender: FDA-Public Use
  Company Number: US-JNJFOC-20220452316

PATIENT
  Age: 80 Year
  Sex: Female

DRUGS (1)
  1. IMODIUM MULTI-SYMPTOM RELIEF [Suspect]
     Active Substance: DIMETHICONE\LOPERAMIDE HYDROCHLORIDE
     Indication: Diarrhoea
     Dosage: 2 CAPLETS ONCE A DAY
     Route: 065
     Dates: start: 20220426

REACTIONS (2)
  - Drug ineffective [Unknown]
  - Product label issue [Unknown]

NARRATIVE: CASE EVENT DATE: 20220426
